FAERS Safety Report 21569662 (Version 1)
Quarter: 2022Q4

REPORT INFORMATION
  Report Type: Spontaneous
  Country: HR (occurrence: None)
  Receive Date: 20221109
  Receipt Date: 20221109
  Transmission Date: 20230112
  Serious: Yes (Other)
  Sender: FDA-Public Use
  Company Number: HR-ROCHE-3214420

PATIENT
  Age: 17 Year
  Sex: Female

DRUGS (4)
  1. RIVOTRIL [Suspect]
     Active Substance: CLONAZEPAM
     Indication: Suicidal ideation
     Dosage: BAG OF PILLS
     Route: 048
     Dates: start: 20220913, end: 20220913
  2. PAROXETINE HYDROCHLORIDE [Suspect]
     Active Substance: PAROXETINE HYDROCHLORIDE
     Indication: Suicidal ideation
     Route: 048
     Dates: start: 20220913, end: 20220913
  3. FEVARIN [Suspect]
     Active Substance: FLUVOXAMINE MALEATE
     Indication: Suicidal ideation
     Route: 048
     Dates: start: 20220913, end: 20220913
  4. NORMABEL [Suspect]
     Active Substance: DIAZEPAM
     Indication: Suicidal ideation
     Route: 048
     Dates: start: 20220913, end: 20220913

REACTIONS (6)
  - Bradycardia [Unknown]
  - Suicide attempt [Unknown]
  - Intentional overdose [Unknown]
  - Bradykinesia [Unknown]
  - Headache [Unknown]
  - Confusional state [Unknown]

NARRATIVE: CASE EVENT DATE: 20220913
